FAERS Safety Report 7200866-6 (Version None)
Quarter: 2010Q4

REPORT INFORMATION
  Report Type: 
  Country: None (occurrence: None)
  Receive Date: 20101228
  Receipt Date: 20101220
  Transmission Date: 20110411
  Serious: Yes (Other)
  Sender: FDA-Public Use
  Company Number: DE-ABBOTT-10P-062-0671342-00

PATIENT
  Sex: Male
  Weight: 76 kg

DRUGS (6)
  1. HUMIRA [Suspect]
     Indication: ANKYLOSING SPONDYLITIS
     Route: 058
     Dates: start: 20100510
  2. HUMIRA [Suspect]
  3. INFLIXIMAB [Suspect]
     Indication: PRODUCT USED FOR UNKNOWN INDICATION
  4. INDOMETACIN [Concomitant]
     Indication: UVEITIS
     Route: 048
  5. INDOMETACIN [Concomitant]
  6. GABAPENTIN [Concomitant]
     Indication: PRODUCT USED FOR UNKNOWN INDICATION

REACTIONS (4)
  - DEPRESSION [None]
  - MULTIPLE SCLEROSIS [None]
  - SENSORY DISTURBANCE [None]
  - SYRINGOMYELIA [None]
